FAERS Safety Report 11499632 (Version 9)
Quarter: 2016Q4

REPORT INFORMATION
  Report Type: Spontaneous
  Country: DE (occurrence: DE)
  Receive Date: 20150914
  Receipt Date: 20161124
  Transmission Date: 20170206
  Serious: Yes (Hospitalization, Other)
  Sender: FDA-Public Use
  Company Number: DE-AMGEN-DEUSP2015093645

PATIENT
  Sex: Female

DRUGS (57)
  1. PEGFILGRASTIM [Suspect]
     Active Substance: PEGFILGRASTIM
     Dosage: UNK, ON DAY 4
     Route: 058
     Dates: start: 20150906
  2. VINCRISTINE [Suspect]
     Active Substance: VINCRISTINE
     Indication: B-CELL LYMPHOMA
     Dosage: UNK, ON DAY 1
     Route: 042
     Dates: start: 20150819
  3. VINCRISTINE [Suspect]
     Active Substance: VINCRISTINE
     Dosage: UNK, 1IN 1 D
     Route: 042
     Dates: start: 20150903
  4. ACICLOVIR [Concomitant]
     Active Substance: ACYCLOVIR
     Dosage: 400 MG, 1 IN 1 D
     Route: 048
     Dates: start: 20160301, end: 20160312
  5. SULFAMETHOXAZOLE-TRIMETHOPRIM (SMZ) [Concomitant]
     Active Substance: SULFAMETHOXAZOLE\TRIMETHOPRIM
     Dosage: 960 MG, (3 IN 1 WK)
     Route: 048
     Dates: start: 20150805
  6. TORASEMIDE [Concomitant]
     Active Substance: TORSEMIDE
     Indication: OEDEMA
     Dosage: 300 MG, 1 IN 1 D
     Route: 048
     Dates: start: 20160304, end: 20160308
  7. TORASEMIDE [Concomitant]
     Active Substance: TORSEMIDE
     Indication: HYPERTONIA
     Dosage: 10 MG, 1 IN 1D
     Route: 048
     Dates: start: 20160304
  8. CODEINE [Concomitant]
     Active Substance: CODEINE
     Dosage: 10 MG, QD (1 IN 1 D)
     Route: 048
     Dates: start: 20160304
  9. PANTOPRAZOLE SODIUM. [Concomitant]
     Active Substance: PANTOPRAZOLE SODIUM
     Indication: PROPHYLAXIS
     Dosage: 40 MG, BID
     Dates: start: 20160420
  10. PANTOPRAZOLE SODIUM. [Concomitant]
     Active Substance: PANTOPRAZOLE SODIUM
     Indication: PROPHYLAXIS AGAINST GASTROINTESTINAL ULCER
  11. ACICLOVIR [Concomitant]
     Active Substance: ACYCLOVIR
     Dosage: 400 MG, (3 IN 1 D)
     Route: 048
     Dates: start: 20150805
  12. FLUCONAZOLE. [Concomitant]
     Active Substance: FLUCONAZOLE
     Dosage: 200 MG, 1 IN 1 D
     Dates: start: 20160303
  13. AMLODIPINE [Concomitant]
     Active Substance: AMLODIPINE BESYLATE
     Indication: HYPERTENSION
     Dosage: 5 MG, 1 IN 1 D
     Dates: start: 20160304
  14. TORASEMIDE [Concomitant]
     Active Substance: TORSEMIDE
     Dosage: 5 MG, QD (1 IN 1 D)
     Route: 048
     Dates: start: 20160421
  15. HYDROCHLOROTHIAZIDE. [Concomitant]
     Active Substance: HYDROCHLOROTHIAZIDE
     Dosage: 25 MG, QD (1 IN 1 D)
     Route: 048
     Dates: start: 20150827
  16. PREDNISOLONE. [Suspect]
     Active Substance: PREDNISOLONE
     Dosage: UNK, (1 IN 1 D)
     Route: 048
     Dates: start: 20150819
  17. VINCRISTINE [Suspect]
     Active Substance: VINCRISTINE
     Dosage: 1 MG, QD (1 IN 1 TOTAL)
     Route: 042
     Dates: start: 20151105, end: 20151105
  18. ALLOPURINOL. [Concomitant]
     Active Substance: ALLOPURINOL
     Indication: PROPHYLAXIS
     Dosage: 300 MG, (1 IN 1 D)
     Route: 048
     Dates: start: 20150805
  19. AMPHOTERICIN B. [Concomitant]
     Active Substance: AMPHOTERICIN B
     Indication: PROPHYLAXIS
     Dosage: UNK, 6 IN 1 D
     Route: 048
     Dates: start: 20150805
  20. FLUCONAZOLE. [Concomitant]
     Active Substance: FLUCONAZOLE
     Dosage: 200 MG, 1 IN 5 D
     Route: 048
     Dates: start: 20150908, end: 20150912
  21. ONDANSETRON [Concomitant]
     Active Substance: ONDANSETRON
     Indication: NAUSEA
     Dosage: 8 MG, FOR 5 DAYS
     Route: 042
     Dates: start: 20160304, end: 20160308
  22. NATRIUMPICOSULFAT [Concomitant]
     Indication: CONSTIPATION
     Dosage: 15 GTT, BID (2 IN 1D)
     Route: 048
     Dates: start: 20160606
  23. PEGFILGRASTIM [Suspect]
     Active Substance: PEGFILGRASTIM
     Dosage: 6 MG, FOR 1 DAY
     Route: 058
     Dates: start: 20151109
  24. RITUXIMAB [Suspect]
     Active Substance: RITUXIMAB
     Dosage: UNK
     Route: 042
     Dates: start: 20151230
  25. PREDNISOLONE. [Suspect]
     Active Substance: PREDNISOLONE
     Indication: B-CELL LYMPHOMA
     Dosage: 100 MG, (1 IN 1 D)
     Route: 048
     Dates: start: 20150803
  26. PREDNISOLONE. [Suspect]
     Active Substance: PREDNISOLONE
     Dosage: UNK, (1 IN 1 D)
     Route: 048
     Dates: start: 20151105, end: 20151109
  27. CYCLOPHOSPHAMIDE. [Suspect]
     Active Substance: CYCLOPHOSPHAMIDE
     Dosage: UNK, ONE TIME DOSE (FOR 1 DAY)
     Route: 042
     Dates: start: 20151105
  28. DOXORUBICINE [Suspect]
     Active Substance: DOXORUBICIN
     Indication: B-CELL LYMPHOMA
     Dosage: UNK, ON DAY 1
     Route: 042
     Dates: start: 20150819
  29. DOXORUBICINE [Suspect]
     Active Substance: DOXORUBICIN
     Dosage: UNK, 1 IN 1 D
     Route: 042
     Dates: start: 20150903
  30. PANTOPRAZOL [Concomitant]
     Active Substance: PANTOPRAZOLE SODIUM
     Indication: PROPHYLAXIS AGAINST GASTROINTESTINAL ULCER
     Dosage: 40 MG, QD (1 IN 1 D)
     Dates: start: 20150730
  31. PANTOPRAZOL [Concomitant]
     Active Substance: PANTOPRAZOLE SODIUM
     Indication: PROPHYLAXIS
     Dosage: UNK, ONE TIME DOSE (1 IN 1 D)
     Dates: start: 20160304
  32. PANTOPRAZOL [Concomitant]
     Active Substance: PANTOPRAZOLE SODIUM
     Dosage: 80 MG, BID (2 IN 1 D)
     Route: 042
     Dates: start: 20160304
  33. ALLOPURINOL. [Concomitant]
     Active Substance: ALLOPURINOL
     Dosage: 300 MG, (1 IN 1 D)
     Route: 048
     Dates: end: 20150915
  34. SODIUM PICOSULFATE [Concomitant]
     Active Substance: SODIUM PICOSULFATE
     Indication: CONSTIPATION
     Dosage: DROPS, BID (2 IN 1 D)
     Route: 048
  35. CIPROFLOXACIN. [Concomitant]
     Active Substance: CIPROFLOXACIN
     Dosage: 500 MG, (2 IN 1 D)
     Route: 048
     Dates: start: 20150908, end: 20150910
  36. AMPHOTERICIN B. [Concomitant]
     Active Substance: AMPHOTERICIN B
     Dosage: UNK, 6 IN 1 D
     Route: 048
     Dates: start: 20150909
  37. CODEINE [Concomitant]
     Active Substance: CODEINE
     Indication: COUGH
     Dosage: 20 GTT, QD (1 IN 1 D)
     Route: 048
     Dates: start: 20160304, end: 20160312
  38. RITUXIMAB [Suspect]
     Active Substance: RITUXIMAB
     Indication: B-CELL LYMPHOMA
     Dosage: UNK
     Route: 042
     Dates: start: 20150814
  39. RITUXIMAB [Suspect]
     Active Substance: RITUXIMAB
     Dosage: UNK, (1 IN 1 D)
     Route: 042
     Dates: start: 20150902
  40. ACICLOVIR [Concomitant]
     Active Substance: ACYCLOVIR
     Indication: PROPHYLAXIS
     Dosage: 400 MG, (4 IN 1 D)
     Route: 048
     Dates: start: 20150805
  41. VALSARTAN. [Concomitant]
     Active Substance: VALSARTAN
     Indication: HYPERTENSION
     Dosage: 320 MG, (1 IN 1 D)
     Route: 048
     Dates: end: 20150827
  42. CYCLOPHOSPHAMIDE. [Suspect]
     Active Substance: CYCLOPHOSPHAMIDE
     Indication: B-CELL LYMPHOMA
     Dosage: UNK
     Route: 042
     Dates: start: 20150819
  43. DOXORUBICINE [Suspect]
     Active Substance: DOXORUBICIN
     Dosage: UNK, ONE TIME DOSE (FOR 1 DAY)
     Route: 042
     Dates: start: 20151105
  44. VALSARTAN. [Concomitant]
     Active Substance: VALSARTAN
     Dosage: 320 MG, QD  (1 IN 1D)
     Route: 048
     Dates: start: 20160301
  45. PREDNISOLONE. [Suspect]
     Active Substance: PREDNISOLONE
     Dosage: DAY 1-5
     Route: 048
     Dates: start: 20150903
  46. CYCLOPHOSPHAMIDE. [Suspect]
     Active Substance: CYCLOPHOSPHAMIDE
     Dosage: UNK, (1 IN 1 D)
     Route: 042
     Dates: start: 20150903
  47. SULFAMETHOXAZOLE-TRIMETHOPRIM (SMZ) [Concomitant]
     Active Substance: SULFAMETHOXAZOLE\TRIMETHOPRIM
     Indication: PROPHYLAXIS
     Dosage: 960 MG, (3 IN 1 WK)
     Route: 048
     Dates: start: 20150803
  48. COLECALCIFEROL [Concomitant]
     Active Substance: CHOLECALCIFEROL
     Indication: OSTEOPOROSIS
     Dosage: 2000 IU, (1 IN 1 WK)
     Route: 048
     Dates: start: 20150807
  49. VALSARTAN. [Concomitant]
     Active Substance: VALSARTAN
     Indication: HYPERTONIA
     Dosage: 320 MG, (12 DAYS)
     Route: 048
     Dates: start: 20160301, end: 20160312
  50. BISOPROLOL [Concomitant]
     Active Substance: BISOPROLOL
     Indication: HYPERTENSION
     Dosage: 2.5 MG, (1 IN 1 D)
     Route: 048
     Dates: end: 20150827
  51. CIPROFLOXACIN. [Concomitant]
     Active Substance: CIPROFLOXACIN
     Indication: PROPHYLAXIS
     Dosage: 500 MG, (2 IN 1 D)
     Route: 048
     Dates: start: 20150824
  52. TAMIFLU [Concomitant]
     Active Substance: OSELTAMIVIR PHOSPHATE
     Dosage: 75 MG, QD, (1 IN 1 D)
     Route: 048
     Dates: start: 20160306, end: 20160308
  53. LEVOFLOXACIN. [Concomitant]
     Active Substance: LEVOFLOXACIN
     Dosage: 500 MG, QD (1 IN 1 D)
     Route: 048
     Dates: start: 20160311, end: 20160314
  54. DALTEPARINUM NATRICUM [Concomitant]
     Dosage: 5000 IU, QD (1 IN 1 D)
     Route: 058
     Dates: start: 20160304, end: 20160311
  55. PEGFILGRASTIM [Suspect]
     Active Substance: PEGFILGRASTIM
     Indication: B-CELL LYMPHOMA
     Dosage: UNK, ON DAY 5
     Route: 058
     Dates: start: 20150823
  56. LERCANIDIPINE HYDROCHLORIDE [Concomitant]
     Active Substance: LERCANIDIPINE HYDROCHLORIDE
     Indication: HYPERTENSION
     Dosage: 20 MG, (1 IN 1 D)
     Route: 048
     Dates: start: 20150827
  57. TRIMETHOPRIM. [Concomitant]
     Active Substance: TRIMETHOPRIM
     Dosage: 960 MG, QD (1 IN 1 D)
     Route: 048
     Dates: start: 20160302, end: 20160312

REACTIONS (6)
  - Hypotension [Recovered/Resolved]
  - Pyrexia [Recovered/Resolved]
  - Gastric ulcer [Recovered/Resolved]
  - Febrile neutropenia [Recovered/Resolved]
  - Pyrexia [Recovered/Resolved]
  - Syncope [Recovered/Resolved]

NARRATIVE: CASE EVENT DATE: 20150810
